FAERS Safety Report 9812544 (Version 1)
Quarter: 2014Q1

REPORT INFORMATION
  Report Type: Report from Study
  Country: CA (occurrence: CA)
  Receive Date: 20140113
  Receipt Date: 20140113
  Transmission Date: 20141002
  Serious: Yes (Hospitalization)
  Sender: FDA-Public Use
  Company Number: CA-BRISTOL-MYERS SQUIBB COMPANY-19989607

PATIENT
  Age: 60 Year
  Sex: Female

DRUGS (9)
  1. ORENCIA [Suspect]
     Indication: RHEUMATOID ARTHRITIS
     Dosage: 1DF=750 UNIT NOS
     Dates: start: 20120116
  2. METFORMIN [Concomitant]
  3. ATORVASTATIN [Concomitant]
  4. ASPIRIN [Concomitant]
  5. SULFASALAZINE [Concomitant]
  6. PREDNISONE [Concomitant]
  7. PLAQUENIL [Concomitant]
  8. METHOTREXATE [Concomitant]
  9. FOLIC ACID [Concomitant]

REACTIONS (1)
  - Upper limb fracture [Unknown]
